FAERS Safety Report 24141582 (Version 1)
Quarter: 2024Q3

REPORT INFORMATION
  Report Type: Spontaneous
  Country: DE (occurrence: DE)
  Receive Date: 20240726
  Receipt Date: 20240726
  Transmission Date: 20241016
  Serious: Yes (Hospitalization)
  Sender: CSL BEHRING
  Company Number: DE-BEH-2024175962

PATIENT
  Age: 76 Year
  Sex: Female
  Weight: 75 kg

DRUGS (8)
  1. PRIVIGEN [Suspect]
     Active Substance: HUMAN IMMUNOGLOBULIN G
     Indication: Myositis
     Dosage: 09:30 A.M.: 25 ML/H (30 MINUTES)
     Route: 042
     Dates: start: 20240711, end: 20240711
  2. PRIVIGEN [Suspect]
     Active Substance: HUMAN IMMUNOGLOBULIN G
     Dosage: UNK
     Route: 042
     Dates: start: 20240711, end: 20240711
  3. PRIVIGEN [Suspect]
     Active Substance: HUMAN IMMUNOGLOBULIN G
     Dosage: UNK
     Route: 042
     Dates: start: 20240711, end: 20240711
  4. PRIVIGEN [Suspect]
     Active Substance: HUMAN IMMUNOGLOBULIN G
     Dosage: UNK
     Route: 042
     Dates: start: 20240711, end: 20240711
  5. PRIVIGEN [Suspect]
     Active Substance: HUMAN IMMUNOGLOBULIN G
     Dosage: UNK
     Route: 042
     Dates: start: 20240711, end: 20240711
  6. PRIVIGEN [Suspect]
     Active Substance: HUMAN IMMUNOGLOBULIN G
     Dosage: UNK
     Route: 042
     Dates: start: 20240711, end: 20240711
  7. PRIVIGEN [Suspect]
     Active Substance: HUMAN IMMUNOGLOBULIN G
     Dosage: UNK
     Route: 042
     Dates: start: 20240711, end: 20240711
  8. PRIVIGEN [Suspect]
     Active Substance: HUMAN IMMUNOGLOBULIN G
     Dosage: UNK
     Route: 042
     Dates: start: 20240711, end: 20240711

REACTIONS (5)
  - Stridor [Recovered/Resolved]
  - Hypertension [Recovered/Resolved]
  - Pyrexia [Recovered/Resolved]
  - Chills [Recovered/Resolved]
  - Vomiting [Recovered/Resolved]

NARRATIVE: CASE EVENT DATE: 20240711
